FAERS Safety Report 7060692-8 (Version None)
Quarter: 2010Q4

REPORT INFORMATION
  Report Type: 
  Country: None (occurrence: None)
  Receive Date: 20101025
  Receipt Date: 20101015
  Transmission Date: 20110411
  Serious: Yes (Other)
  Sender: FDA-Public Use
  Company Number: AR-ROCHE-727802

PATIENT
  Age: 20 Year
  Sex: Female
  Weight: 54 kg

DRUGS (2)
  1. ROACCUTAN [Suspect]
     Indication: ACNE
     Dosage: CUMULATIVE DOSE: 6470 MG (PLANNED DOSE: 8100MG)
     Route: 048
     Dates: start: 20100401, end: 20100917
  2. ROACCUTAN [Suspect]
     Route: 048
     Dates: start: 20100924

REACTIONS (4)
  - ABDOMINAL PAIN [None]
  - CONSTIPATION [None]
  - DECREASED APPETITE [None]
  - PYREXIA [None]
